FAERS Safety Report 8627656 (Version 4)
Quarter: 2013Q4

REPORT INFORMATION
  Report Type: Spontaneous
  Country: US (occurrence: US)
  Receive Date: 20120605
  Receipt Date: 20131031
  Transmission Date: 20140711
  Serious: Yes (Death, Life-Threatening, Hospitalization)
  Sender: FDA-Public Use
  Company Number: US-009507513-2012SP029432

PATIENT
  Age: 66 Year
  Sex: Male

DRUGS (1)
  1. DULERA [Suspect]
     Indication: ASTHMA
     Dosage: 100 ?G, BID
     Route: 055
     Dates: start: 2012

REACTIONS (2)
  - Cardiac failure congestive [Fatal]
  - Pneumonia [Unknown]
